FAERS Safety Report 7006214-9 (Version None)
Quarter: 2010Q3

REPORT INFORMATION
  Report Type: 
  Country: None (occurrence: None)
  Receive Date: 20100921
  Receipt Date: 20100830
  Transmission Date: 20110219
  Serious: No
  Sender: FDA-Public Use
  Company Number: US-PFIZER INC-2010109018

PATIENT
  Sex: Female

DRUGS (2)
  1. TIKOSYN [Suspect]
  2. VICODIN [Suspect]

REACTIONS (4)
  - CHEST PAIN [None]
  - DIZZINESS [None]
  - SINUS HEADACHE [None]
  - TREMOR [None]
